FAERS Safety Report 5941588-9 (Version None)
Quarter: 2008Q4

REPORT INFORMATION
  Report Type: 
  Country: None (occurrence: None)
  Receive Date: 20081103
  Receipt Date: 20061116
  Transmission Date: 20090506
  Serious: Yes (Death, Hospitalization)
  Sender: FDA-Public Use
  Company Number: 2006-00857FE

PATIENT
  Age: 37 Year
  Sex: Female

DRUGS (2)
  1. CHORIONIC GONADTROPIN [Suspect]
     Indication: IN VITRO FERTILISATION
  2. FOLLITROPIN BETA () (FOLLITROPIN BETA) [Suspect]
     Indication: IN VITRO FERTILISATION

REACTIONS (4)
  - DEEP VEIN THROMBOSIS [None]
  - HAEMORRHAGE [None]
  - PULMONARY EMBOLISM [None]
  - RENAL DISORDER [None]
